FAERS Safety Report 4964057-1 (Version None)
Quarter: 2006Q1

REPORT INFORMATION
  Report Type: 
  Country: None (occurrence: None)
  Receive Date: 20060330
  Receipt Date: 20060308
  Transmission Date: 20060701
  Serious: Yes (Other)
  Sender: FDA-Public Use
  Company Number: US200603001873

PATIENT
  Age: 74 Year
  Sex: Female

DRUGS (2)
  1. HUMULIN LENTE(HUMAN INSULIN (RDNA ORIGIN) LENTE UNKNOWN MANUFACTURER) [Suspect]
     Dosage: AS NEEDED
  2. HUMULIN R [Suspect]
     Indication: DIABETES MELLITUS

REACTIONS (6)
  - BLOOD GLUCOSE DECREASED [None]
  - FALL [None]
  - MUSCLE INJURY [None]
  - MUSCULAR WEAKNESS [None]
  - PATELLA FRACTURE [None]
  - WALKING AID USER [None]
